FAERS Safety Report 11953574 (Version 1)
Quarter: 2016Q1

REPORT INFORMATION
  Report Type: Report from Study
  Country: US (occurrence: US)
  Receive Date: 20160125
  Receipt Date: 20160125
  Transmission Date: 20160526
  Serious: No
  Sender: FDA-Public Use
  Company Number: US-ABBVIE-15K-163-1340644-00

PATIENT
  Sex: Female

DRUGS (1)
  1. HUMIRA [Suspect]
     Active Substance: ADALIMUMAB
     Indication: PRODUCT USED FOR UNKNOWN INDICATION
     Route: 065
     Dates: end: 2010

REACTIONS (5)
  - Swelling face [Unknown]
  - Confusional state [Unknown]
  - Hypersensitivity [Recovered/Resolved]
  - Nausea [Unknown]
  - Food interaction [Unknown]
